FAERS Safety Report 21005365 (Version 3)
Quarter: 2022Q3

REPORT INFORMATION
  Report Type: Report from Study
  Country: NL (occurrence: NL)
  Receive Date: 20220624
  Receipt Date: 20220812
  Transmission Date: 20221027
  Serious: Yes (Hospitalization, Other)
  Sender: FDA-Public Use
  Company Number: NL-ABBVIE-21K-114-4180595-00

PATIENT
  Sex: Female

DRUGS (2)
  1. CARBIDOPA\LEVODOPA [Suspect]
     Active Substance: CARBIDOPA\LEVODOPA
     Indication: Parkinson^s disease
     Dosage: MD: 4.2 ML, CND: 3.4 ML/H
     Route: 050
  2. CARBIDOPA\LEVODOPA [Suspect]
     Active Substance: CARBIDOPA\LEVODOPA
     Dosage: MD 7.0 ML CD 4.9 ML/H ED 1.5 ML ND 7.0 ML CND 4.2 ML/H END 1.5 ML
     Route: 050

REACTIONS (13)
  - Transient ischaemic attack [Recovered/Resolved with Sequelae]
  - Dizziness [Unknown]
  - Motor dysfunction [Unknown]
  - Pain in extremity [Unknown]
  - Abnormal dreams [Not Recovered/Not Resolved]
  - Memory impairment [Not Recovered/Not Resolved]
  - Weight decreased [Unknown]
  - Parkinson^s disease [Not Recovered/Not Resolved]
  - Stoma site discharge [Recovered/Resolved]
  - Orthostatic hypotension [Not Recovered/Not Resolved]
  - Asthenia [Not Recovered/Not Resolved]
  - Bowel movement irregularity [Not Recovered/Not Resolved]
  - Papule [Not Recovered/Not Resolved]

NARRATIVE: CASE EVENT DATE: 20220101
